FAERS Safety Report 5301352-0 (Version None)
Quarter: 2007Q2

REPORT INFORMATION
  Report Type: 
  Country: None (occurrence: None)
  Receive Date: 20070418
  Receipt Date: 20070418
  Transmission Date: 20071010
  Serious: Yes (Other)
  Sender: FDA-Public Use
  Company Number: US-GENENTECH-237951

PATIENT
  Sex: Female
  Weight: 32.8 kg

DRUGS (1)
  1. SOMATROPIN [Suspect]
     Indication: TURNER'S SYNDROME
     Dosage: 2.1 MG, 7/WEEK
     Dates: start: 20040825

REACTIONS (1)
  - WRIST FRACTURE [None]
